FAERS Safety Report 5309172-8 (Version None)
Quarter: 2007Q2

REPORT INFORMATION
  Report Type: 
  Country: None (occurrence: None)
  Receive Date: 20070420
  Receipt Date: 20070410
  Transmission Date: 20071010
  Serious: Yes (Hospitalization)
  Sender: FDA-Public Use
  Company Number: GXKR2007GB03305

PATIENT
  Age: 56 Year
  Sex: Female
  Weight: 33 kg

DRUGS (6)
  1. DIAZEPAM [Suspect]
     Indication: AGITATION
     Dosage: SEE IMAGE
     Dates: start: 19920301
  2. HALOPERIDOL [Suspect]
     Indication: PSYCHOTIC DISORDER
     Dosage: 1.5 MG, UNKNOWN
     Dates: start: 19920301
  3. PROCYCLIDINE HYDROCHLORIDE 2MG TAB [Suspect]
     Dosage: SEE IMAGE
     Dates: start: 19920301
  4. FLUPENTIXOL (FLUPENTIXOL) [Concomitant]
  5. PREDNISOLONE [Concomitant]
  6. AZATHIOPRINE [Concomitant]

REACTIONS (16)
  - AGITATION [None]
  - ASPIRATION [None]
  - BRADYKINESIA [None]
  - COGWHEEL RIGIDITY [None]
  - COUGH [None]
  - CREPITATIONS [None]
  - DYSPHAGIA [None]
  - DYSPHONIA [None]
  - EXTRAPYRAMIDAL DISORDER [None]
  - LARYNGEAL INFLAMMATION [None]
  - MALNUTRITION [None]
  - MASKED FACIES [None]
  - ORTHOSTATIC HYPOTENSION [None]
  - PRODUCTIVE COUGH [None]
  - RESTLESSNESS [None]
  - WEIGHT DECREASED [None]
